FAERS Safety Report 11539106 (Version 5)
Quarter: 2016Q4

REPORT INFORMATION
  Report Type: Report from Study
  Country: CA (occurrence: CA)
  Receive Date: 20150923
  Receipt Date: 20161209
  Transmission Date: 20170206
  Serious: Yes (Other)
  Sender: FDA-Public Use
  Company Number: CA-ROCHE-1607679

PATIENT
  Age: 70 Year
  Sex: Male

DRUGS (36)
  1. ESBRIET [Suspect]
     Active Substance: PIRFENIDONE
     Route: 048
     Dates: start: 20150701
  2. PREDNISONE. [Concomitant]
     Active Substance: PREDNISONE
  3. ASA [Concomitant]
     Active Substance: ASPIRIN
     Route: 065
  4. PLAVIX [Concomitant]
     Active Substance: CLOPIDOGREL BISULFATE
  5. CALCIUM CARBONATE. [Concomitant]
     Active Substance: CALCIUM CARBONATE
  6. CRESTOR [Concomitant]
     Active Substance: ROSUVASTATIN CALCIUM
  7. LASIX [Concomitant]
     Active Substance: FUROSEMIDE
  8. OXYGEN. [Concomitant]
     Active Substance: OXYGEN
  9. ZENHALE [Concomitant]
     Active Substance: FORMOTEROL FUMARATE\MOMETASONE FUROATE
  10. ESBRIET [Suspect]
     Active Substance: PIRFENIDONE
     Dosage: 267MG-534MG-534MG/DAY
     Route: 048
     Dates: start: 20150919
  11. ESBRIET [Suspect]
     Active Substance: PIRFENIDONE
     Route: 048
     Dates: start: 201504, end: 2015
  12. ESBRIET [Suspect]
     Active Substance: PIRFENIDONE
     Route: 048
     Dates: start: 20151126
  13. LIPITOR [Concomitant]
     Active Substance: ATORVASTATIN CALCIUM
  14. MAGNESIUM OXIDE. [Concomitant]
     Active Substance: MAGNESIUM OXIDE
  15. SPIRIVA [Concomitant]
     Active Substance: TIOTROPIUM BROMIDE MONOHYDRATE
  16. MYCOPHENOLATE SODIUM [Concomitant]
     Active Substance: MYCOPHENOLATE SODIUM
  17. ALENDRONATE [Concomitant]
     Active Substance: ALENDRONATE SODIUM
  18. COUMADIN [Concomitant]
     Active Substance: WARFARIN SODIUM
  19. DOMPERIDONE [Concomitant]
     Active Substance: DOMPERIDONE
  20. ANUSOL (CANADA) [Concomitant]
  21. ESBRIET [Suspect]
     Active Substance: PIRFENIDONE
     Route: 048
     Dates: start: 20150327
  22. ESBRIET [Suspect]
     Active Substance: PIRFENIDONE
     Route: 048
     Dates: start: 20150403, end: 20150505
  23. ESBRIET [Suspect]
     Active Substance: PIRFENIDONE
     Route: 048
  24. LEVOTHYROXINE. [Concomitant]
     Active Substance: LEVOTHYROXINE
  25. RAMIPRIL. [Concomitant]
     Active Substance: RAMIPRIL
  26. AZITHROMYCIN ANHYDROUS. [Concomitant]
     Active Substance: AZITHROMYCIN ANHYDROUS
  27. ANDROGEL [Concomitant]
     Active Substance: TESTOSTERONE
  28. ESBRIET [Suspect]
     Active Substance: PIRFENIDONE
     Indication: IDIOPATHIC PULMONARY FIBROSIS
     Route: 048
     Dates: start: 20150320, end: 20151229
  29. ESBRIET [Suspect]
     Active Substance: PIRFENIDONE
     Dosage: 534MG-267MG-534MG
     Route: 048
     Dates: start: 20151110
  30. ZOPICLONE [Concomitant]
     Active Substance: ZOPICLONE
  31. ESBRIET [Suspect]
     Active Substance: PIRFENIDONE
     Route: 048
     Dates: end: 201504
  32. SEPTRA [Concomitant]
     Active Substance: SULFAMETHOXAZOLE\TRIMETHOPRIM
     Dosage: (M/W/F)
     Route: 065
  33. ESBRIET [Suspect]
     Active Substance: PIRFENIDONE
     Dosage: 267MG-534MG-267MG/DAY
     Route: 048
     Dates: start: 20150901
  34. CYCLOSPORINE. [Concomitant]
     Active Substance: CYCLOSPORINE
  35. NEXIUM [Concomitant]
     Active Substance: ESOMEPRAZOLE MAGNESIUM
  36. HUMULIN - NPH [Concomitant]
     Dosage: BID
     Route: 065

REACTIONS (22)
  - Fatigue [Not Recovered/Not Resolved]
  - Ageusia [Not Recovered/Not Resolved]
  - Dyspnoea [Unknown]
  - Blood urine present [Unknown]
  - Nausea [Unknown]
  - Ageusia [Unknown]
  - Dizziness [Unknown]
  - Gait disturbance [Unknown]
  - Vision blurred [Unknown]
  - Asthenia [Recovering/Resolving]
  - Poor quality sleep [Unknown]
  - Dyspepsia [Unknown]
  - Fatigue [Unknown]
  - Muscular weakness [Unknown]
  - Head discomfort [Not Recovered/Not Resolved]
  - Dizziness [Not Recovered/Not Resolved]
  - Eructation [Unknown]
  - Asthenia [Unknown]
  - Dyspnoea [Not Recovered/Not Resolved]
  - Feeling abnormal [Unknown]
  - Vision blurred [Not Recovered/Not Resolved]
  - Flatulence [Unknown]

NARRATIVE: CASE EVENT DATE: 20150327
